FAERS Safety Report 21611021 (Version 2)
Quarter: 2023Q1

REPORT INFORMATION
  Report Type: Spontaneous
  Country: US (occurrence: US)
  Receive Date: 20221117
  Receipt Date: 20230119
  Transmission Date: 20230418
  Serious: Yes (Other)
  Sender: FDA-Public Use
  Company Number: US-PFIZER INC-PV202200105205

PATIENT
  Age: 45 Year
  Sex: Female

DRUGS (2)
  1. XELJANZ XR [Suspect]
     Active Substance: TOFACITINIB CITRATE
     Indication: Rheumatoid arthritis
     Dosage: 11 MG, DAILY
     Route: 048
     Dates: end: 2022
  2. XELJANZ XR [Suspect]
     Active Substance: TOFACITINIB CITRATE
     Dosage: 11 MG, DAILY
     Route: 048
     Dates: start: 20221113, end: 20230109

REACTIONS (7)
  - Respiratory arrest [Unknown]
  - COVID-19 [Unknown]
  - Atypical pneumonia [Unknown]
  - Illness [Unknown]
  - Respiratory tract infection [Unknown]
  - Infection susceptibility increased [Unknown]
  - Infection [Unknown]

NARRATIVE: CASE EVENT DATE: 20200101
